FAERS Safety Report 6740466-5 (Version None)
Quarter: 2010Q2

REPORT INFORMATION
  Report Type: 
  Country: None (occurrence: None)
  Receive Date: 20100525
  Receipt Date: 20100513
  Transmission Date: 20101027
  Serious: Yes (Other)
  Sender: FDA-Public Use
  Company Number: PHHY2010AU31043

PATIENT
  Sex: Female

DRUGS (4)
  1. DIOVAN [Suspect]
     Dosage: 80 MG, UNK
  2. ETHAMBUTOL [Concomitant]
     Indication: PULMONARY TUBERCULOSIS
     Dosage: 1.6 G PER DAY
     Dates: start: 20090901
  3. RIFAMPICIN [Concomitant]
     Indication: PULMONARY TUBERCULOSIS
     Dosage: 600 MG PER DAY
     Dates: start: 20090901
  4. CLARITHROMYCIN [Concomitant]
     Indication: PULMONARY TUBERCULOSIS
     Dosage: 1 G PER DAY
     Dates: start: 20090901

REACTIONS (3)
  - RETINAL DISORDER [None]
  - RETINOPATHY [None]
  - VISUAL IMPAIRMENT [None]
